FAERS Safety Report 15312072 (Version 1)
Quarter: 2018Q3

REPORT INFORMATION
  Report Type: Spontaneous
  Country: US (occurrence: US)
  Receive Date: 20180814
  Receipt Date: 20180814
  Transmission Date: 20181010
  Serious: Yes (Other)
  Sender: FDA-Public Use
  Company Number: None

PATIENT
  Age: 76 Year
  Sex: Female
  Weight: 77.11 kg

DRUGS (10)
  1. NITROFURANTOIN MONOHYDRATE MACROCRYSTALS [Suspect]
     Active Substance: NITROFURANTOIN\NITROFURANTOIN MONOHYDRATE
     Indication: ESCHERICHIA INFECTION
     Route: 048
     Dates: start: 20180219, end: 20180223
  2. LISINOPRIL?HCTZ [Concomitant]
     Active Substance: HYDROCHLOROTHIAZIDE\LISINOPRIL
  3. HYDROCODONE [Concomitant]
     Active Substance: HYDROCODONE
  4. NITROFURANTOIN MONOHYDRATE MACROCRYSTALS [Suspect]
     Active Substance: NITROFURANTOIN\NITROFURANTOIN MONOHYDRATE
     Indication: BACTERIAL TEST POSITIVE
     Route: 048
     Dates: start: 20180219, end: 20180223
  5. DIPHENHYDRAMINE. [Concomitant]
     Active Substance: DIPHENHYDRAMINE
  6. ACETAMIN [Concomitant]
     Active Substance: ACETAMINOPHEN
  7. DOCUSATE SODIUM. [Concomitant]
     Active Substance: DOCUSATE SODIUM
  8. ALPRAZOLAM. [Suspect]
     Active Substance: ALPRAZOLAM
  9. RANITIDINE. [Concomitant]
     Active Substance: RANITIDINE
  10. METOPROLOL TARTRATE. [Concomitant]
     Active Substance: METOPROLOL TARTRATE

REACTIONS (5)
  - Asthenia [None]
  - Pyrexia [None]
  - Fatigue [None]
  - Chills [None]
  - Decreased appetite [None]

NARRATIVE: CASE EVENT DATE: 20180219
